FAERS Safety Report 7295887-1 (Version None)
Quarter: 2011Q1

REPORT INFORMATION
  Report Type: 
  Country: None (occurrence: None)
  Receive Date: 20110216
  Receipt Date: 20110207
  Transmission Date: 20110831
  Serious: Yes (Other)
  Sender: FDA-Public Use
  Company Number: FR-ASTRAZENECA-2011SE08058

PATIENT
  Sex: Male

DRUGS (10)
  1. XYZAL [Concomitant]
  2. AMLOR [Concomitant]
  3. CRESTOR [Concomitant]
  4. XYLOCAINE [Suspect]
     Indication: ANAESTHESIA
     Dosage: SINGLE ADMINISTRATION
     Dates: start: 20100424, end: 20100424
  5. SUFENTANIL CITRATE [Suspect]
     Indication: INDUCTION OF ANAESTHESIA
     Dosage: SINGLE ADMINISTRATION
     Route: 042
     Dates: start: 20100424, end: 20100424
  6. TRACRIUM [Suspect]
     Indication: INDUCTION OF ANAESTHESIA
     Route: 042
     Dates: start: 20100424, end: 20100424
  7. CEFAZOLIN [Suspect]
     Indication: ANTIBIOTIC PROPHYLAXIS
     Route: 042
     Dates: start: 20100424, end: 20100424
  8. SERETIDE [Concomitant]
  9. DIPRIVAN [Suspect]
     Indication: INDUCTION OF ANAESTHESIA
     Dosage: SINGLE ADMINISTRATION
     Route: 042
     Dates: start: 20100424, end: 20100424
  10. ALLOPURINOL [Concomitant]

REACTIONS (1)
  - BRONCHOSPASM [None]
